FAERS Safety Report 16404310 (Version 1)
Quarter: 2019Q2

REPORT INFORMATION
  Report Type: Spontaneous
  Country: US (occurrence: US)
  Receive Date: 20190607
  Receipt Date: 20190607
  Transmission Date: 20190711
  Serious: No
  Sender: FDA-Public Use
  Company Number: US-PFIZER INC-2019240197

PATIENT
  Age: 67 Year
  Sex: Female

DRUGS (2)
  1. ELIQUIS [Suspect]
     Active Substance: APIXABAN
     Indication: DEEP VEIN THROMBOSIS
     Dosage: 10 MG, 2X/DAY
     Route: 065
     Dates: start: 20190529
  2. XANAX [Suspect]
     Active Substance: ALPRAZOLAM
     Dosage: UNK
     Route: 065

REACTIONS (1)
  - Arthralgia [Unknown]
